FAERS Safety Report 7013386-9 (Version None)
Quarter: 2010Q3

REPORT INFORMATION
  Report Type: 
  Country: None (occurrence: None)
  Receive Date: 20100924
  Receipt Date: 20100914
  Transmission Date: 20110219
  Serious: Yes (Hospitalization)
  Sender: FDA-Public Use
  Company Number: US-JNJCH-2010021451

PATIENT
  Age: 19 Year
  Sex: Female

DRUGS (1)
  1. BENADRYL INJECTABLE [Suspect]
     Indication: HYPERSENSITIVITY
     Dosage: TEXT:UNKNOWN
     Route: 030

REACTIONS (3)
  - LARYNGOSPASM [None]
  - MUSCLE SPASMS [None]
  - TRISMUS [None]
